FAERS Safety Report 8446734-3 (Version None)
Quarter: 2012Q2

REPORT INFORMATION
  Report Type: 
  Country: None (occurrence: None)
  Receive Date: 20120619
  Receipt Date: 20120612
  Transmission Date: 20120825
  Serious: No
  Sender: FDA-Public Use
  Company Number: US-BIOGENIDEC-2012BI020620

PATIENT
  Age: 45 Year
  Sex: Female

DRUGS (3)
  1. TYSABRI [Suspect]
     Indication: MULTIPLE SCLEROSIS
     Route: 042
     Dates: start: 20120604
  2. CLONOPIN [Concomitant]
     Indication: INSOMNIA
  3. ZOLOFT [Concomitant]
     Indication: DEPRESSION

REACTIONS (7)
  - APHONIA [None]
  - BRONCHITIS [None]
  - TONGUE DRY [None]
  - DRY THROAT [None]
  - NASAL CONGESTION [None]
  - COUGH [None]
  - URTICARIA [None]
